FAERS Safety Report 16773692 (Version 1)
Quarter: 2019Q4

REPORT INFORMATION
  Report Type: Spontaneous
  Country: US (occurrence: US)
  Receive Date: 20190904
  Receipt Date: 20190904
  Transmission Date: 20200122
  Serious: Yes (Hospitalization)
  Sender: FDA-Public Use
  Company Number: None

PATIENT
  Age: 50 Year
  Sex: Female

DRUGS (5)
  1. ENBREL [Suspect]
     Active Substance: ETANERCEPT
     Indication: RHEUMATOID ARTHRITIS
     Dosage: ?          OTHER FREQUENCY:EVERY OTHER WEEK;?
     Route: 058
     Dates: start: 20170407
  2. ATORVASTATIN [Concomitant]
     Active Substance: ATORVASTATIN
  3. OLM MED/AMLO [Concomitant]
  4. POT CHLORIDE [Concomitant]
     Active Substance: POTASSIUM CHLORIDE
  5. STOOLER SOFTNER [Concomitant]

REACTIONS (6)
  - Endometriosis [None]
  - Pain [None]
  - Therapy cessation [None]
  - Loss of personal independence in daily activities [None]
  - Arthralgia [None]
  - Surgery [None]

NARRATIVE: CASE EVENT DATE: 20190620
